FAERS Safety Report 23998438 (Version 2)
Quarter: 2024Q3

REPORT INFORMATION
  Report Type: Spontaneous
  Country: US (occurrence: US)
  Receive Date: 20240621
  Receipt Date: 20240705
  Transmission Date: 20241016
  Serious: No
  Sender: ROCHE
  Company Number: US-ROCHE-10000000872

PATIENT
  Age: 66 Year
  Sex: Female
  Weight: 46.72 kg

DRUGS (4)
  1. XOLAIR [Suspect]
     Active Substance: OMALIZUMAB
     Indication: Urticaria
     Dosage: 150MG IN EACH ARM, EVERY OTHER MONTH, ADMINISTERED BY HCP
     Route: 058
     Dates: start: 202402
  2. XOLAIR [Suspect]
     Active Substance: OMALIZUMAB
     Dosage: 150MG IN EACH ARM, EVERY MONTH, ADMINISTERED BY HCP
     Route: 058
     Dates: start: 2020, end: 202402
  3. TIMOLOL [Concomitant]
     Active Substance: TIMOLOL
     Indication: Glaucoma
  4. LATANOPROST [Concomitant]
     Active Substance: LATANOPROST
     Indication: Glaucoma
     Dosage: RIGHT EYE AT BEDTIME

REACTIONS (2)
  - Urticaria [Recovered/Resolved]
  - Needle issue [Unknown]

NARRATIVE: CASE EVENT DATE: 20240401
